FAERS Safety Report 9513732 (Version 1)
Quarter: 2013Q1

REPORT INFORMATION
  Report Type: Spontaneous
  Country: US (occurrence: None)
  Receive Date: 20130305
  Receipt Date: 20130305
  Transmission Date: 20140127
  Serious: Yes (Hospitalization)
  Sender: FDA-Public Use
  Company Number: 163-21880-12102267

PATIENT
  Age: 55 Year
  Sex: Female

DRUGS (5)
  1. REVLIMID (LENALIDOMIDE) (CAPSULES) [Suspect]
     Indication: PLASMA CELL MYELOMA
     Dosage: 10 MG, 28 IN 28 D, PO
     Route: 048
     Dates: start: 20120830
  2. ACYCLOVIR (ACICLOVIR) (UNKNOWN) [Concomitant]
  3. ASPIRIN (ACETYLSALICYLIC ACID) (UNKNOWN) (ACETYLSALICYLIC ACID) [Concomitant]
  4. SULFAMETHAOXAZOLE TMP DS (BACTRIM) (UNKNOWN) [Concomitant]
  5. TYLENOL (PARACETAMOL) (UNKNOWN) [Concomitant]

REACTIONS (4)
  - Neutropenia [None]
  - Nasopharyngitis [None]
  - Rash [None]
  - Fatigue [None]
